FAERS Safety Report 14764204 (Version 1)
Quarter: 2018Q2

REPORT INFORMATION
  Report Type: Spontaneous
  Country: US (occurrence: US)
  Receive Date: 20180410
  Receipt Date: 20180410
  Transmission Date: 20180711
  Serious: Yes (Other)
  Sender: FDA-Public Use
  Company Number: None

PATIENT
  Age: 28 Year
  Sex: Female
  Weight: 72.57 kg

DRUGS (2)
  1. PARAGARD T 380A [Suspect]
     Active Substance: COPPER
     Dates: start: 20160531, end: 20180410
  2. XANAX [Concomitant]
     Active Substance: ALPRAZOLAM

REACTIONS (2)
  - Actinomycosis [None]
  - Pregnancy with contraceptive device [None]

NARRATIVE: CASE EVENT DATE: 20180308
